FAERS Safety Report 4601769-3 (Version None)
Quarter: 2005Q1

REPORT INFORMATION
  Report Type: 
  Country: None (occurrence: None)
  Receive Date: 20050128
  Receipt Date: 20040707
  Transmission Date: 20050727
  Serious: Yes (Other)
  Sender: FDA-Public Use
  Company Number: 139451USA

PATIENT
  Age: 28 Year
  Sex: Female

DRUGS (11)
  1. COPAXONE [Suspect]
     Indication: MULTIPLE SCLEROSIS
     Dosage: 20 MILLIGRAM QD; SUBCUTANEOUS
     Route: 058
     Dates: start: 20011001
  2. VALIUM [Concomitant]
  3. PROVIGIL [Concomitant]
  4. ZANAFLEX [Concomitant]
  5. DETROL [Concomitant]
  6. ZOFRAN [Concomitant]
  7. PREVACID [Concomitant]
  8. NAPROSYN [Concomitant]
  9. PROZAC [Concomitant]
  10. BACLOFEN [Concomitant]
  11. BIRTH CONTROL PILLS [Concomitant]

REACTIONS (4)
  - DYSPNOEA [None]
  - OROPHARYNGEAL SWELLING [None]
  - PRURITUS [None]
  - URTICARIA [None]
